FAERS Safety Report 17426838 (Version 1)
Quarter: 2020Q1

REPORT INFORMATION
  Report Type: Spontaneous
  Country: FR (occurrence: FR)
  Receive Date: 20200218
  Receipt Date: 20200218
  Transmission Date: 20200409
  Serious: Yes (Hospitalization)
  Sender: FDA-Public Use
  Company Number: FR-TEVA-2020-FR-1187478

PATIENT
  Age: 15 Year
  Sex: Female
  Weight: 60 kg

DRUGS (1)
  1. ISOTRETINOIN. [Suspect]
     Active Substance: ISOTRETINOIN
     Indication: ACNE
     Dosage: 0.5 MG/KG
     Route: 048
     Dates: start: 20191015, end: 20191220

REACTIONS (2)
  - Suicidal ideation [Recovered/Resolved]
  - Anorexia nervosa [Recovered/Resolved]

NARRATIVE: CASE EVENT DATE: 201912
